FAERS Safety Report 18359417 (Version 2)
Quarter: 2020Q4

REPORT INFORMATION
  Report Type: Report from Study
  Country: US (occurrence: US)
  Receive Date: 20201008
  Receipt Date: 20201015
  Transmission Date: 20210114
  Serious: Yes (Other)
  Sender: FDA-Public Use
  Company Number: US-PFIZER INC-2020383477

PATIENT
  Age: 37 Year
  Sex: Female

DRUGS (1)
  1. ALPRAZOLAM. [Suspect]
     Active Substance: ALPRAZOLAM
     Indication: BORDERLINE PERSONALITY DISORDER
     Dosage: 4 MG, DAILY (CA 4) (AVERAGE DAILY DOSE OF ALPRAZOLAM WAS 4.7 MG)

REACTIONS (1)
  - Intentional self-injury [Unknown]
